FAERS Safety Report 6305523-6 (Version None)
Quarter: 2009Q3

REPORT INFORMATION
  Report Type: 
  Country: None (occurrence: None)
  Receive Date: 20090811
  Receipt Date: 20090731
  Transmission Date: 20100115
  Serious: Yes (Hospitalization)
  Sender: FDA-Public Use
  Company Number: FR-GILEAD-E2B_00000412

PATIENT
  Sex: Male

DRUGS (13)
  1. AMBRISENTAN [Suspect]
     Indication: PULMONARY ARTERIAL HYPERTENSION
     Dosage: 5MG PER DAY
     Route: 048
     Dates: start: 20090615
  2. TREPROSTINIL [Concomitant]
     Indication: PULMONARY ARTERIAL HYPERTENSION
     Dates: start: 20090109
  3. TREPROSTINIL [Concomitant]
     Dosage: 45UKM CONTINUOUS
     Route: 058
     Dates: start: 20090109
  4. KARDEGIC [Concomitant]
     Indication: INFARCTION
     Dosage: 75MG PER DAY
     Route: 048
     Dates: start: 19950101
  5. SILDENAFIL CITRATE [Concomitant]
     Indication: PULMONARY ARTERIAL HYPERTENSION
     Dosage: 20MG THREE TIMES PER DAY
     Route: 048
     Dates: start: 20080423
  6. NEXIUM [Concomitant]
     Indication: HERNIA
     Dosage: 20MG SINGLE DOSE
     Route: 048
     Dates: start: 20060320
  7. TAHOR [Concomitant]
     Indication: MYOCARDIAL INFARCTION
     Dosage: 40MG PER DAY
     Route: 048
     Dates: start: 20040101
  8. LASIX [Concomitant]
     Indication: MYOCARDIAL INFARCTION
     Dosage: 40MG PER DAY
     Route: 048
     Dates: start: 20040101
  9. AMAREL [Concomitant]
     Indication: DRUG USE FOR UNKNOWN INDICATION
     Dosage: 4MG PER DAY
     Route: 048
     Dates: start: 20061130
  10. PREVISCAN [Concomitant]
     Indication: PULMONARY EMBOLISM
     Dosage: 5MG PER DAY
     Route: 048
     Dates: start: 20020901
  11. ATARAX [Concomitant]
     Indication: ANXIETY
     Dosage: 25MG PER DAY
     Route: 048
     Dates: start: 20090101
  12. ALDACTONE [Concomitant]
     Indication: DIURETIC THERAPY
     Dosage: 50MG PER DAY
     Route: 048
     Dates: start: 20090601, end: 20090721
  13. DIFFU K [Concomitant]
     Indication: HYPOKALAEMIA
     Dosage: 1800MG PER DAY
     Route: 048
     Dates: start: 20030101

REACTIONS (1)
  - RIGHT VENTRICULAR FAILURE [None]
